FAERS Safety Report 11752362 (Version 1)
Quarter: 2015Q4

REPORT INFORMATION
  Report Type: Spontaneous
  Country: US (occurrence: US)
  Receive Date: 20151118
  Receipt Date: 20151118
  Transmission Date: 20160304
  Serious: Yes (Hospitalization)
  Sender: FDA-Public Use
  Company Number: US-HOSPIRA-3077216

PATIENT
  Age: 71 Year
  Sex: Female
  Weight: 73.92 kg

DRUGS (8)
  1. REVATIO [Suspect]
     Active Substance: SILDENAFIL CITRATE
     Indication: PULMONARY HYPERTENSION
     Route: 048
     Dates: start: 2015
  2. PROCARDIA [Suspect]
     Active Substance: NIFEDIPINE
     Indication: PRODUCT USED FOR UNKNOWN INDICATION
  3. MORPHINE SULPHATE [Suspect]
     Active Substance: MORPHINE SULFATE
     Indication: PRODUCT USED FOR UNKNOWN INDICATION
  4. METOPROLOL [Suspect]
     Active Substance: METOPROLOL
     Indication: PRODUCT USED FOR UNKNOWN INDICATION
  5. DICLOFENAC EPOLAMINE [Suspect]
     Active Substance: DICLOFENAC EPOLAMINE
     Indication: PRODUCT USED FOR UNKNOWN INDICATION
  6. REMERON [Suspect]
     Active Substance: MIRTAZAPINE
     Indication: PRODUCT USED FOR UNKNOWN INDICATION
  7. LASIX [Suspect]
     Active Substance: FUROSEMIDE
     Indication: PRODUCT USED FOR UNKNOWN INDICATION
  8. ZOLOFT [Suspect]
     Active Substance: SERTRALINE HYDROCHLORIDE
     Indication: PRODUCT USED FOR UNKNOWN INDICATION

REACTIONS (6)
  - Femur fracture [Unknown]
  - Cellulitis [Unknown]
  - Osteoarthritis [Unknown]
  - Feeling abnormal [Unknown]
  - Enteritis [Unknown]
  - Infection [Unknown]
